FAERS Safety Report 7445171-8 (Version None)
Quarter: 2011Q2

REPORT INFORMATION
  Report Type: 
  Country: None (occurrence: None)
  Receive Date: 20110429
  Receipt Date: 20110419
  Transmission Date: 20111010
  Serious: Yes (Other)
  Sender: FDA-Public Use
  Company Number: US-JNJFOC-20110305427

PATIENT
  Sex: Male

DRUGS (2)
  1. FENTANYL-100 [Suspect]
     Route: 062
  2. FENTANYL-100 [Suspect]
     Indication: PAIN
     Dosage: SECOND LOT OF PATCHES
     Route: 062

REACTIONS (6)
  - LOSS OF CONSCIOUSNESS [None]
  - PRODUCT QUALITY ISSUE [None]
  - DIZZINESS [None]
  - UNEVALUABLE EVENT [None]
  - PRODUCT ADHESION ISSUE [None]
  - BLOOD PRESSURE DECREASED [None]
